FAERS Safety Report 15949482 (Version 2)
Quarter: 2019Q1

REPORT INFORMATION
  Report Type: Spontaneous
  Country: JP (occurrence: JP)
  Receive Date: 20190212
  Receipt Date: 20190219
  Transmission Date: 20190417
  Serious: No
  Sender: FDA-Public Use
  Company Number: JP-MYLANLABS-2019M1012628

PATIENT
  Age: 73 Year
  Sex: Female

DRUGS (1)
  1. KLARICID TABLETS 200MG [Suspect]
     Active Substance: CLARITHROMYCIN
     Indication: NASOPHARYNGITIS
     Dosage: 400 MILLIGRAM, QD
     Route: 048

REACTIONS (1)
  - Pupillary disorder [Unknown]
